FAERS Safety Report 14983248 (Version 1)
Quarter: 2018Q2

REPORT INFORMATION
  Report Type: Spontaneous
  Country: US (occurrence: US)
  Receive Date: 20180517
  Receipt Date: 20180517
  Transmission Date: 20180711
  Serious: Yes (Other)
  Sender: FDA-Public Use
  Company Number: None

PATIENT
  Age: 52 Year
  Sex: Female
  Weight: 52.2 kg

DRUGS (1)
  1. YUVAFEM [Suspect]
     Active Substance: ESTRADIOL HEMIHYDRATE
     Indication: ATROPHIC VULVOVAGINITIS
     Route: 067
     Dates: start: 20180302, end: 20180326

REACTIONS (4)
  - Product substitution issue [None]
  - Vulvovaginal discomfort [None]
  - Migraine [None]
  - Rash [None]

NARRATIVE: CASE EVENT DATE: 20180326
